FAERS Safety Report 17405065 (Version 1)
Quarter: 2020Q1

REPORT INFORMATION
  Report Type: Spontaneous
  Country: CN (occurrence: CN)
  Receive Date: 20200212
  Receipt Date: 20200212
  Transmission Date: 20200409
  Serious: Yes (Death, Life-Threatening, Hospitalization, Other)
  Sender: FDA-Public Use
  Company Number: CN-ACCORD-172064

PATIENT
  Age: 51 Year
  Sex: Male

DRUGS (7)
  1. DEXAMETHASONE. [Suspect]
     Active Substance: DEXAMETHASONE
     Indication: T-CELL TYPE ACUTE LEUKAEMIA
     Dosage: DAYS 1-15
  2. IDARUBICIN [Suspect]
     Active Substance: IDARUBICIN
     Indication: T-CELL TYPE ACUTE LEUKAEMIA
     Dosage: ON DAYS 3-5
  3. MITOXANTRONE [Suspect]
     Active Substance: MITOXANTRONE HYDROCHLORIDE
     Indication: T-CELL TYPE ACUTE LEUKAEMIA
     Dosage: ON DAYS 1-3
  4. CYTARABINE/CYTARABINE HYDROCHLORIDE/CYTARABINE OCFOSFATE [Suspect]
     Active Substance: CYTARABINE
     Indication: T-CELL TYPE ACUTE LEUKAEMIA
     Dosage: ON DAYS 1-3
  5. CYCLOPHOSPHAMIDE/CYCLOPHOSPHAMIDE MONOHYDRATE [Suspect]
     Active Substance: CYCLOPHOSPHAMIDE
     Indication: T-CELL TYPE ACUTE LEUKAEMIA
     Dosage: ON DAYS 9
  6. VINDESINE/VINDESINE SULFATE [Suspect]
     Active Substance: VINDESINE
     Indication: T-CELL TYPE ACUTE LEUKAEMIA
     Dosage: ON DAYS 2, 9, 16, 23
  7. ETOPOSIDE. [Suspect]
     Active Substance: ETOPOSIDE
     Indication: T-CELL TYPE ACUTE LEUKAEMIA
     Dosage: ON DAYS 1-3

REACTIONS (2)
  - Stenotrophomonas infection [Fatal]
  - Pseudomonas infection [Fatal]
